FAERS Safety Report 10386864 (Version 1)
Quarter: 2014Q1

REPORT INFORMATION
  Report Type: Spontaneous
  Country: US (occurrence: None)
  Receive Date: 20140306
  Receipt Date: 20140306
  Transmission Date: 20141002
  Serious: Yes (Hospitalization, Other)
  Sender: FDA-Public Use
  Company Number: 163-21880-13042887

PATIENT
  Age: 68 Year
  Sex: Male

DRUGS (6)
  1. REVLIMID (LENALIDOMIDE) (CAPSULES) [Suspect]
     Indication: PLASMA CELL MYELOMA
     Dosage: 10 MG, 21 IN 28 D
     Route: 048
     Dates: start: 20120206, end: 20130410
  2. ZOMETA (ZOLEDRONIC ACID) [Concomitant]
  3. METOPROLOL [Concomitant]
  4. PLAVIX (CLOPIDOGREL SULFATE) [Concomitant]
  5. ASA (ACETYLSALICYLIC ACID) [Concomitant]
  6. PERCOCET (OXYCOCET) [Concomitant]

REACTIONS (1)
  - Pancytopenia [None]
